FAERS Safety Report 15250831 (Version 2)
Quarter: 2018Q3

REPORT INFORMATION
  Report Type: Spontaneous
  Country: US (occurrence: US)
  Receive Date: 20180807
  Receipt Date: 20180815
  Transmission Date: 20181010
  Serious: Yes (Death, Hospitalization)
  Sender: FDA-Public Use
  Company Number: US-EAGLE PHARMACEUTICALS, INC.-US-2018EAG000061

PATIENT
  Age: 59 Year
  Sex: Female
  Weight: 57.6 kg

DRUGS (6)
  1. BENDEKA [Suspect]
     Active Substance: BENDAMUSTINE HYDROCHLORIDE
     Dosage: (CYCLE 3)
     Route: 065
     Dates: start: 2018
  2. RITUXAN [Suspect]
     Active Substance: RITUXIMAB
     Indication: B-CELL LYMPHOMA
     Dosage: UNK
     Route: 065
  3. BENDEKA [Suspect]
     Active Substance: BENDAMUSTINE HYDROCHLORIDE
     Indication: B-CELL LYMPHOMA
     Dosage: (CYCLE 1)
     Route: 065
     Dates: start: 201801
  4. BENDEKA [Suspect]
     Active Substance: BENDAMUSTINE HYDROCHLORIDE
     Dosage: (CYCLE 2)
     Route: 065
     Dates: start: 2018
  5. BENDEKA [Suspect]
     Active Substance: BENDAMUSTINE HYDROCHLORIDE
     Dosage: (CYCLE 5)
     Route: 065
     Dates: start: 20180511
  6. BENDEKA [Suspect]
     Active Substance: BENDAMUSTINE HYDROCHLORIDE
     Dosage: (CYCLE 4)
     Route: 065
     Dates: start: 2018

REACTIONS (1)
  - Aplastic anaemia [Fatal]

NARRATIVE: CASE EVENT DATE: 20180510
